FAERS Safety Report 11099134 (Version 1)
Quarter: 2015Q2

REPORT INFORMATION
  Report Type: Spontaneous
  Country: FR (occurrence: FR)
  Receive Date: 20150508
  Receipt Date: 20150508
  Transmission Date: 20150821
  Serious: Yes (Life-Threatening)
  Sender: FDA-Public Use
  Company Number: FR-009507513-1505FRA001480

PATIENT
  Age: 69 Year
  Sex: Male

DRUGS (2)
  1. TEMODAL [Suspect]
     Active Substance: TEMOZOLOMIDE
     Dosage: 1 DF, QD
     Route: 048
     Dates: start: 201003, end: 201402
  2. AVASTIN [Suspect]
     Active Substance: BEVACIZUMAB
     Dosage: 1 DF, QD
     Route: 042
     Dates: start: 2010, end: 201412

REACTIONS (1)
  - Acute myeloid leukaemia [Recovered/Resolved]

NARRATIVE: CASE EVENT DATE: 201503
